FAERS Safety Report 25264077 (Version 2)
Quarter: 2025Q2

REPORT INFORMATION
  Report Type: Report from Study
  Country: GB (occurrence: GB)
  Receive Date: 20250502
  Receipt Date: 20250506
  Transmission Date: 20250716
  Serious: Yes (Other)
  Sender: NOVARTIS
  Company Number: GB-002147023-NVSC2025GB070994

PATIENT
  Sex: Female

DRUGS (1)
  1. COSENTYX [Suspect]
     Active Substance: SECUKINUMAB
     Indication: Product used for unknown indication
     Route: 065

REACTIONS (5)
  - Groin abscess [Not Recovered/Not Resolved]
  - Abscess [Not Recovered/Not Resolved]
  - Furuncle [Not Recovered/Not Resolved]
  - Malaise [Unknown]
  - Dry skin [Unknown]
